FAERS Safety Report 11647448 (Version 9)
Quarter: 2016Q1

REPORT INFORMATION
  Report Type: Spontaneous
  Country: US (occurrence: US)
  Receive Date: 20151021
  Receipt Date: 20160304
  Transmission Date: 20160525
  Serious: Yes (Hospitalization, Other)
  Sender: FDA-Public Use
  Company Number: US-PFIZER INC-2015320845

PATIENT
  Age: 79 Year
  Sex: Male
  Weight: 93.88 kg

DRUGS (16)
  1. SUTENT [Suspect]
     Active Substance: SUNITINIB MALATE
     Dosage: 25 MG, DAILY
     Dates: start: 20160211
  2. BABY ASPIRIN [Concomitant]
     Active Substance: ASPIRIN
     Dosage: UNK
  3. OXYCONTIN [Concomitant]
     Active Substance: OXYCODONE HYDROCHLORIDE
  4. ZOFRAN [Concomitant]
     Active Substance: ONDANSETRON HYDROCHLORIDE
     Dosage: UNK
  5. ATORVASTATIN [Concomitant]
     Active Substance: ATORVASTATIN
     Dosage: UNK
  6. METOPROLOL. [Concomitant]
     Active Substance: METOPROLOL
     Dosage: UNK
  7. SINGULAIR [Concomitant]
     Active Substance: MONTELUKAST SODIUM
  8. HYTRIN [Concomitant]
     Active Substance: TERAZOSIN HYDROCHLORIDE
  9. LIPITOR [Concomitant]
     Active Substance: ATORVASTATIN CALCIUM
  10. TERAZOSIN [Concomitant]
     Active Substance: TERAZOSIN\TERAZOSIN HYDROCHLORIDE
     Dosage: UNK
  11. SUTENT [Suspect]
     Active Substance: SUNITINIB MALATE
     Indication: GASTROINTESTINAL STROMAL TUMOUR
     Dosage: 25 MG, DAILY
  12. ONDANSETRON [Concomitant]
     Active Substance: ONDANSETRON
     Dosage: UNK
  13. SUTENT [Suspect]
     Active Substance: SUNITINIB MALATE
     Dosage: 25 MG ALTERNATING WITH 37.5 MG EVERY OTHER DAY
     Dates: start: 20150923, end: 20151223
  14. LASIX [Concomitant]
     Active Substance: FUROSEMIDE
  15. LOSARTAN. [Concomitant]
     Active Substance: LOSARTAN
     Dosage: UNK
  16. COZAAR [Concomitant]
     Active Substance: LOSARTAN POTASSIUM

REACTIONS (24)
  - Vomiting [Unknown]
  - Nausea [Recovering/Resolving]
  - Haemoglobin decreased [Recovered/Resolved]
  - Fatigue [Unknown]
  - Acute kidney injury [Unknown]
  - Weight decreased [Recovering/Resolving]
  - Fluid retention [Recovering/Resolving]
  - Atrioventricular block [Unknown]
  - Hyperhidrosis [Unknown]
  - Dry mouth [Unknown]
  - Stomatitis [Unknown]
  - Pain [Recovering/Resolving]
  - Pain in extremity [Unknown]
  - Rash [Recovered/Resolved]
  - Tumour pain [Unknown]
  - Cardiac failure congestive [Unknown]
  - Decreased appetite [Recovered/Resolved]
  - Retching [Unknown]
  - Constipation [Recovered/Resolved]
  - Flatulence [Unknown]
  - Dysgeusia [Unknown]
  - Diarrhoea [Recovered/Resolved]
  - Arthralgia [Unknown]
  - Joint swelling [Unknown]
